FAERS Safety Report 21665224 (Version 1)
Quarter: 2022Q4

REPORT INFORMATION
  Report Type: Spontaneous
  Country: US (occurrence: US)
  Receive Date: 20221201
  Receipt Date: 20221201
  Transmission Date: 20230113
  Serious: No
  Sender: FDA-Public Use
  Company Number: US-SA-SAC20221128000167

PATIENT
  Age: 42 Year
  Sex: Female
  Weight: 86.182 kg

DRUGS (2)
  1. DUPIXENT [Suspect]
     Active Substance: DUPILUMAB
     Indication: Dermatitis atopic
     Dosage: 300 MG, QOW
     Route: 058
     Dates: start: 202207
  2. OPZELURA [Concomitant]
     Active Substance: RUXOLITINIB PHOSPHATE

REACTIONS (4)
  - Dry skin [Not Recovered/Not Resolved]
  - Tachycardia [Not Recovered/Not Resolved]
  - Middle insomnia [Not Recovered/Not Resolved]
  - Pruritus [Not Recovered/Not Resolved]
